FAERS Safety Report 6509868-6 (Version None)
Quarter: 2009Q4

REPORT INFORMATION
  Report Type: 
  Country: None (occurrence: None)
  Receive Date: 20091222
  Receipt Date: 20091215
  Transmission Date: 20100525
  Serious: Yes (Other)
  Sender: FDA-Public Use
  Company Number: ES-JNJFOC-20091205592

PATIENT
  Age: 17 Year
  Sex: Female

DRUGS (5)
  1. INVEGA [Suspect]
     Indication: SCHIZOPHRENIA
     Route: 048
  2. INVEGA [Suspect]
     Route: 048
  3. INVEGA [Suspect]
     Route: 048
  4. FLUOXETINA [Interacting]
     Indication: SCHIZOPHRENIA
  5. FLUOXETINA [Interacting]

REACTIONS (3)
  - DRUG INTERACTION [None]
  - HYPERSOMNIA [None]
  - SOMNOLENCE [None]
